FAERS Safety Report 11089816 (Version 1)
Quarter: 2015Q2

REPORT INFORMATION
  Report Type: Spontaneous
  Country: US (occurrence: None)
  Receive Date: 20150504
  Receipt Date: 20150504
  Transmission Date: 20150821
  Serious: Yes (Hospitalization)
  Sender: FDA-Public Use
  Company Number: None

PATIENT
  Age: 65 Year
  Sex: Male

DRUGS (13)
  1. LEVOTHYROXINE (LEVOTHROID/SYNTHROID) [Concomitant]
  2. MOMETASONE-FORMOTEROL (DULERA) [Concomitant]
  3. LOVENOX [Concomitant]
     Active Substance: ENOXAPARIN SODIUM
  4. WARFARIN (COUMADIN) [Concomitant]
  5. SILDENAFIL (REVATIO) [Concomitant]
  6. LIPITOR [Concomitant]
     Active Substance: ATORVASTATIN CALCIUM
  7. ALBUTEROL (PROAIR HFA) [Concomitant]
  8. LASIX [Concomitant]
     Active Substance: FUROSEMIDE
  9. SPIRONOLACTONE (ALDACTONE) [Concomitant]
  10. OMEPRAZOLE (PRILOSEC) [Concomitant]
  11. MONTEUKAST (SINGULAIR) [Concomitant]
  12. LETAIRIS [Suspect]
     Active Substance: AMBRISENTAN
     Indication: PULMONARY ARTERIAL HYPERTENSION
     Route: 048
     Dates: start: 20150401
  13. ALLOPURINOL (ZYLOPRIM) [Concomitant]

REACTIONS (2)
  - Pulmonary embolism [None]
  - Deep vein thrombosis [None]

NARRATIVE: CASE EVENT DATE: 20150408
